FAERS Safety Report 12951775 (Version 2)
Quarter: 2019Q1

REPORT INFORMATION
  Report Type: Report from Study
  Country: US (occurrence: US)
  Receive Date: 20161117
  Receipt Date: 20190107
  Transmission Date: 20190417
  Serious: Yes (Other)
  Sender: FDA-Public Use
  Company Number: US-TAKEDA-2016TUS020648

PATIENT
  Age: 65 Year
  Sex: Female

DRUGS (5)
  1. VORTIOXETINE. [Suspect]
     Active Substance: VORTIOXETINE
     Indication: BIPOLAR DISORDER
     Dosage: 20 MG, QD
     Route: 048
     Dates: end: 20161108
  2. LAMICTAL [Concomitant]
     Active Substance: LAMOTRIGINE
     Indication: BIPOLAR DISORDER
     Dosage: UNK
     Route: 048
     Dates: start: 2008
  3. VORTIOXETINE. [Suspect]
     Active Substance: VORTIOXETINE
     Dosage: 15 MG, UNK
     Route: 065
  4. VORTIOXETINE. [Suspect]
     Active Substance: VORTIOXETINE
     Dosage: 10 MG, QD
     Route: 048
     Dates: start: 20161109
  5. LORAZEPAM. [Concomitant]
     Active Substance: LORAZEPAM
     Indication: ANXIETY
     Dosage: UNK
     Route: 048
     Dates: start: 2008

REACTIONS (5)
  - Optic ischaemic neuropathy [Not Recovered/Not Resolved]
  - Off label use [Not Recovered/Not Resolved]
  - Abdominal distension [Unknown]
  - Constipation [Unknown]
  - Feeling jittery [Not Recovered/Not Resolved]

NARRATIVE: CASE EVENT DATE: 20161028
